FAERS Safety Report 20353795 (Version 2)
Quarter: 2022Q1

REPORT INFORMATION
  Report Type: Report from Study
  Country: AU (occurrence: AU)
  Receive Date: 20220120
  Receipt Date: 20220125
  Transmission Date: 20220423
  Serious: Yes (Other)
  Sender: FDA-Public Use
  Company Number: AU-BAYER-2022A006003

PATIENT

DRUGS (2)
  1. EYLEA [Suspect]
     Active Substance: AFLIBERCEPT
     Indication: Diabetic retinal oedema
     Dosage: INTRAVITREAL INJECTION TO RIGHT EYE, 40 MG/ML, EVERY FOUR TO FIVE WEEKS
     Route: 031
     Dates: start: 20210201
  2. EYLEA [Suspect]
     Active Substance: AFLIBERCEPT
     Dosage: INTRAVITREAL INJECTION TO RIGHT EYE, EVERY FOUR TO FIVE WEEKS
     Route: 031
     Dates: start: 20220110

REACTIONS (6)
  - Eye haemorrhage [Unknown]
  - Diabetes mellitus [Unknown]
  - Dry eye [Not Recovered/Not Resolved]
  - Vitreous floaters [Not Recovered/Not Resolved]
  - Eye irritation [Unknown]
  - Eye discharge [Unknown]

NARRATIVE: CASE EVENT DATE: 20220110
